FAERS Safety Report 10664473 (Version 2)
Quarter: 2014Q4

REPORT INFORMATION
  Report Type: Spontaneous
  Country: AU (occurrence: AU)
  Receive Date: 20141219
  Receipt Date: 20141219
  Transmission Date: 20150529
  Serious: Yes (Other)
  Sender: FDA-Public Use
  Company Number: AU-PFIZER INC-2014345824

PATIENT
  Sex: Female

DRUGS (1)
  1. CHAMPIX [Suspect]
     Active Substance: VARENICLINE TARTRATE
     Dosage: UNK

REACTIONS (8)
  - Renal pain [Unknown]
  - Anger [Unknown]
  - Nightmare [Unknown]
  - Vomiting [Unknown]
  - Kidney infection [Unknown]
  - Blood urine present [Unknown]
  - Cystitis [Unknown]
  - Nausea [Unknown]
